FAERS Safety Report 10540508 (Version 1)
Quarter: 2014Q4

REPORT INFORMATION
  Report Type: Spontaneous
  Country: US (occurrence: None)
  Receive Date: 20141023
  Receipt Date: 20141023
  Transmission Date: 20150529
  Serious: Yes (Other)
  Sender: FDA-Public Use
  Company Number: None

PATIENT
  Sex: Female
  Weight: 102.06 kg

DRUGS (6)
  1. METFORMIN [Suspect]
     Active Substance: METFORMIN HYDROCHLORIDE
     Indication: BLOOD CHOLESTEROL
  2. LYRICA [Suspect]
     Active Substance: PREGABALIN
  3. FUROSEMIDE. [Suspect]
     Active Substance: FUROSEMIDE
  4. POTASSIUM [Suspect]
     Active Substance: POTASSIUM
     Indication: DIABETES MELLITUS
  5. PRAVASTATIN [Suspect]
     Active Substance: PRAVASTATIN\PRAVASTATIN SODIUM
  6. POTASSIUM [Suspect]
     Active Substance: POTASSIUM
     Indication: NEURALGIA

REACTIONS (6)
  - Rash [None]
  - Hypoaesthesia [None]
  - Myalgia [None]
  - Muscle spasms [None]
  - Muscular weakness [None]
  - Pyrexia [None]
